FAERS Safety Report 20900876 (Version 1)
Quarter: 2022Q2

REPORT INFORMATION
  Report Type: Spontaneous
  Country: US (occurrence: None)
  Receive Date: 20220601
  Receipt Date: 20220601
  Transmission Date: 20220721
  Serious: Yes (Death, Hospitalization)
  Sender: FDA-Public Use
  Company Number: None

PATIENT
  Age: 46 Year
  Sex: Female
  Weight: 56.1 kg

DRUGS (7)
  1. PEG/L-ASPARAGINASE [Suspect]
     Active Substance: PEGASPARGASE
     Dates: end: 20180716
  2. CYTARABINE [Suspect]
     Active Substance: CYTARABINE
     Dates: end: 20180702
  3. DAUNORUBICIN [Suspect]
     Active Substance: DAUNORUBICIN
     Dates: end: 20180713
  4. DEXAMETHASONE [Suspect]
     Active Substance: DEXAMETHASONE
     Dates: end: 20180717
  5. METHOTREXATE [Suspect]
     Active Substance: METHOTREXATE
     Dates: end: 20180712
  6. RITUXIMAB [Suspect]
     Active Substance: RITUXIMAB
     Dates: end: 20180713
  7. VINCRISTINE SULFATE [Suspect]
     Active Substance: VINCRISTINE SULFATE
     Dates: end: 20180713

REACTIONS (8)
  - Asthenia [None]
  - Dysarthria [None]
  - Visual field defect [None]
  - Headache [None]
  - Vomiting [None]
  - Coma [None]
  - Cough [None]
  - Leukaemia [None]

NARRATIVE: CASE EVENT DATE: 20180810
